FAERS Safety Report 7713254-0 (Version None)
Quarter: 2011Q3

REPORT INFORMATION
  Report Type: 
  Country: None (occurrence: None)
  Receive Date: 20110826
  Receipt Date: 20110811
  Transmission Date: 20111222
  Serious: Yes (Hospitalization)
  Sender: FDA-Public Use
  Company Number: ES-BAYER-2011-076748

PATIENT
  Age: 85 Year
  Sex: Male

DRUGS (6)
  1. PLAVIX [Interacting]
     Route: 048
     Dates: start: 20110531
  2. SINTROM [Interacting]
     Indication: ATRIAL FIBRILLATION
     Route: 048
     Dates: start: 20090803, end: 20110603
  3. ATORVASTATIN [Concomitant]
     Indication: DYSLIPIDAEMIA
     Route: 048
     Dates: start: 20110531
  4. ASPIRIN [Suspect]
     Route: 048
     Dates: start: 20110531
  5. AMIODARONE HCL [Interacting]
     Indication: VENTRICULAR TACHYARRHYTHMIA
     Route: 048
     Dates: start: 20110531, end: 20110603
  6. CARVEDILOL [Concomitant]
     Indication: VENTRICULAR TACHYARRHYTHMIA
     Route: 048
     Dates: start: 20110531, end: 20110603

REACTIONS (2)
  - COAGULOPATHY [None]
  - ANAEMIA [None]
